FAERS Safety Report 8386259-7 (Version None)
Quarter: 2012Q2

REPORT INFORMATION
  Report Type: 
  Country: None (occurrence: None)
  Receive Date: 20120525
  Receipt Date: 20120521
  Transmission Date: 20120825
  Serious: Yes (Hospitalization)
  Sender: FDA-Public Use
  Company Number: FR-PFIZER INC-2012121990

PATIENT
  Sex: Female

DRUGS (2)
  1. SUMATRIPTAN SUCCINATE [Suspect]
     Indication: MIGRAINE
     Dosage: UNK
     Route: 064
  2. RELPAX [Suspect]
     Indication: MIGRAINE
     Dosage: UNK
     Route: 064

REACTIONS (2)
  - CRANIOSYNOSTOSIS [None]
  - MATERNAL EXPOSURE TIMING UNSPECIFIED [None]
